FAERS Safety Report 9339361 (Version 1)
Quarter: 2013Q2

REPORT INFORMATION
  Report Type: Spontaneous
  Country: US (occurrence: US)
  Receive Date: 20130610
  Receipt Date: 20130610
  Transmission Date: 20140414
  Serious: Yes (Death, Hospitalization, Other)
  Sender: FDA-Public Use
  Company Number: US-BIOGENIDEC-2008BI008092

PATIENT
  Age: 58 Year
  Sex: Male

DRUGS (4)
  1. TYSABRI [Suspect]
     Indication: MULTIPLE SCLEROSIS
     Route: 042
     Dates: start: 20070917, end: 20080215
  2. AVONEX [Concomitant]
     Indication: MULTIPLE SCLEROSIS
     Dates: start: 20010126
  3. BACLOFEN [Concomitant]
     Indication: MUSCLE SPASTICITY
     Dates: start: 2008, end: 2008
  4. ZANAFLEX [Concomitant]
     Indication: MUSCLE SPASTICITY
     Dates: start: 2008, end: 2008

REACTIONS (4)
  - Pneumonia aspiration [Recovered/Resolved]
  - Pyrexia [Unknown]
  - Vein disorder [Unknown]
  - Respiratory arrest [Fatal]
